FAERS Safety Report 7779515-4 (Version None)
Quarter: 2011Q3

REPORT INFORMATION
  Report Type: 
  Country: None (occurrence: None)
  Receive Date: 20110927
  Receipt Date: 20110913
  Transmission Date: 20111222
  Serious: Yes (Other)
  Sender: FDA-Public Use
  Company Number: US-RANBAXY-2011US-48381

PATIENT
  Age: 9 Year
  Sex: Female

DRUGS (4)
  1. FLUTICASONE PROPIONATE [Suspect]
     Indication: ASTHMA
     Dosage: 110 UG, BID
     Route: 055
  2. FLUCONAZOLE [Suspect]
     Indication: VULVOVAGINAL CANDIDIASIS
     Dosage: 100 MG, QD
     Route: 048
  3. FLUTICASONE PROPIONATE [Suspect]
     Dosage: 220 UG, BID
     Route: 055
  4. PREDNISONE [Concomitant]
     Indication: PRODUCT USED FOR UNKNOWN INDICATION
     Route: 065

REACTIONS (4)
  - DRUG INTERACTION [None]
  - CUSHING'S SYNDROME [None]
  - VULVOVAGINAL CANDIDIASIS [None]
  - ADRENAL INSUFFICIENCY [None]
